FAERS Safety Report 7810899-4 (Version None)
Quarter: 2011Q4

REPORT INFORMATION
  Report Type: 
  Country: None (occurrence: None)
  Receive Date: 20111013
  Receipt Date: 20111010
  Transmission Date: 20120403
  Serious: No
  Sender: FDA-Public Use
  Company Number: US-PFIZER INC-2011241460

PATIENT
  Sex: Female

DRUGS (1)
  1. MECLIZINE HCL [Suspect]
     Indication: MENIERE'S DISEASE
     Dosage: UNK

REACTIONS (1)
  - DRUG INEFFECTIVE [None]
